FAERS Safety Report 7904579-4 (Version None)
Quarter: 2011Q4

REPORT INFORMATION
  Report Type: 
  Country: None (occurrence: None)
  Receive Date: 20111109
  Receipt Date: 20111028
  Transmission Date: 20120403
  Serious: Yes (Hospitalization)
  Sender: FDA-Public Use
  Company Number: US-GLAXOSMITHKLINE-A0862106A

PATIENT
  Sex: Female
  Weight: 100 kg

DRUGS (1)
  1. AVANDIA [Suspect]
     Indication: DIABETES MELLITUS
     Route: 048
     Dates: start: 20010101, end: 20070101

REACTIONS (5)
  - CARDIAC DISORDER [None]
  - GASTRIC DISORDER [None]
  - CATARACT [None]
  - GLAUCOMA [None]
  - DEPRESSION [None]
